FAERS Safety Report 7878461-5 (Version None)
Quarter: 2011Q4

REPORT INFORMATION
  Report Type: 
  Country: None (occurrence: None)
  Receive Date: 20111028
  Receipt Date: 20111015
  Transmission Date: 20120403
  Serious: Yes (Hospitalization)
  Sender: FDA-Public Use
  Company Number: 2011AP002410

PATIENT
  Age: 58 Year
  Sex: Male

DRUGS (18)
  1. BUDESONIDE [Concomitant]
  2. WARFARIN SODIUM [Concomitant]
  3. FENTANYL [Concomitant]
  4. OMEPRAZOLE [Concomitant]
  5. FERROUS SULFATE TAB [Concomitant]
  6. MIDAZOLAM [Concomitant]
  7. SUCCINYLCHOLINE CHLORIDE [Concomitant]
  8. ZOLPIDEM TARTRATE [Concomitant]
  9. PROPOFOL [Concomitant]
  10. GABAPENTIN [Suspect]
     Indication: PAIN
     Dosage: 900 MG;TID
  11. TOLTERODINE TARTRATE [Concomitant]
  12. KETAMINE HCL [Suspect]
     Indication: GENERAL ANAESTHESIA
     Dosage: 100 MG;IV
     Route: 042
  13. METFORMIN HCL [Concomitant]
  14. FORMOTEROL FUMARATE [Concomitant]
  15. ALBUTEROL [Concomitant]
  16. LISINOPRIL [Concomitant]
  17. HYDROCHLOROTHIAZIDE [Concomitant]
  18. SENNA /00142201/ [Concomitant]

REACTIONS (8)
  - DRUG INTERACTION [None]
  - PARALYSIS FLACCID [None]
  - UNRESPONSIVE TO STIMULI [None]
  - DISSOCIATION [None]
  - DEPRESSED LEVEL OF CONSCIOUSNESS [None]
  - CONVERSION DISORDER [None]
  - DYSARTHRIA [None]
  - AREFLEXIA [None]
